FAERS Safety Report 9518487 (Version 1)
Quarter: 2013Q1

REPORT INFORMATION
  Report Type: Spontaneous
  Country: US (occurrence: None)
  Receive Date: 20130305
  Receipt Date: 20130305
  Transmission Date: 20140127
  Serious: Yes (Disabling)
  Sender: FDA-Public Use
  Company Number: 163-21880-11121991

PATIENT
  Sex: Female

DRUGS (6)
  1. REVLIMID (LENALIDOMIDE) [Suspect]
     Indication: PLASMA CELL MYELOMA
     Dosage: 25 MG, DAILY X 21 DAYS, PO
     Route: 048
     Dates: start: 201012
  2. ACYCLOVIR(ACICLOVIR) [Concomitant]
  3. ALPRAZOLAM(ALPRAZOLAM) [Concomitant]
  4. ASA (ACETYLSALICYL ACID) [Concomitant]
  5. DEXAMETHASONE [Concomitant]
  6. FILGRASTIM(FILGRASTIM) [Concomitant]

REACTIONS (1)
  - Plasma cell myeloma [None]
